FAERS Safety Report 8408895-1 (Version None)
Quarter: 2012Q2

REPORT INFORMATION
  Report Type: 
  Country: None (occurrence: None)
  Receive Date: 20120604
  Receipt Date: 20120311
  Transmission Date: 20120825
  Serious: No
  Sender: FDA-Public Use
  Company Number: US-NOVEN-12US004266

PATIENT
  Sex: Male
  Weight: 34.014 kg

DRUGS (6)
  1. ABILIFY [Concomitant]
     Indication: MOOD SWINGS
     Dosage: 2 MG, HS
     Route: 048
  2. MELATONIN [Concomitant]
     Indication: INSOMNIA
     Dosage: 10 MG, QD
     Route: 048
  3. DAYTRANA [Suspect]
     Indication: ATTENTION DEFICIT/HYPERACTIVITY DISORDER
     Dosage: 20 MG, UNK
     Route: 062
     Dates: start: 20120307
  4. OMEPRAZOLE [Concomitant]
     Indication: GASTRIC DISORDER
     Dosage: 20 MG, BID
     Route: 048
  5. HYOSCYAMINE [Concomitant]
     Indication: GASTRIC DISORDER
     Dosage: 0.125 MG, BID
     Route: 048
  6. GUANFACINE [Concomitant]
     Indication: INSOMNIA
     Dosage: 1 MG, QD
     Route: 048

REACTIONS (3)
  - WRONG TECHNIQUE IN DRUG USAGE PROCESS [None]
  - NO ADVERSE EVENT [None]
  - PRODUCT QUALITY ISSUE [None]
